FAERS Safety Report 7608246-6 (Version None)
Quarter: 2011Q3

REPORT INFORMATION
  Report Type: 
  Country: None (occurrence: None)
  Receive Date: 20110714
  Receipt Date: 20110630
  Transmission Date: 20111222
  Serious: Yes (Other)
  Sender: FDA-Public Use
  Company Number: BR-JNJFOC-20101208273

PATIENT
  Age: 36 Year
  Sex: Male

DRUGS (1)
  1. REMICADE [Suspect]
     Indication: CROHN'S DISEASE
     Route: 042
     Dates: start: 20090215, end: 20100101

REACTIONS (5)
  - RENAL DISORDER [None]
  - KIDNEY ENLARGEMENT [None]
  - PANCREATIC ENLARGEMENT [None]
  - PANCREATITIS [None]
  - PANCREATIC DISORDER [None]
